FAERS Safety Report 8543755-7 (Version None)
Quarter: 2012Q3

REPORT INFORMATION
  Report Type: 
  Country: None (occurrence: None)
  Receive Date: 20120717
  Receipt Date: 20120703
  Transmission Date: 20120928
  Serious: Yes (Other)
  Sender: FDA-Public Use
  Company Number: JPI-P-020919

PATIENT
  Age: 32 Year
  Sex: Female
  Weight: 56.6996 kg

DRUGS (4)
  1. MULTIPLE UNSPECIFIED MEDICATIONS [Concomitant]
  2. DIAZEPAM [Suspect]
     Indication: THERAPEUTIC PROCEDURE
  3. XYREM [Suspect]
     Indication: NARCOLEPSY
     Dosage: 4.5 GM (2.25 GM, 2 IN 1 D), ORAL
     Route: 048
     Dates: start: 20111110
  4. MIDAZOLAM [Suspect]
     Indication: THERAPEUTIC PROCEDURE

REACTIONS (6)
  - MALIGNANT MELANOMA STAGE II [None]
  - WEIGHT INCREASED [None]
  - PALLOR [None]
  - VOMITING [None]
  - RESPIRATORY ARREST [None]
  - HYPERHIDROSIS [None]
